FAERS Safety Report 6147618-6 (Version None)
Quarter: 2009Q2

REPORT INFORMATION
  Report Type: 
  Country: None (occurrence: None)
  Receive Date: 20090402
  Receipt Date: 20090318
  Transmission Date: 20091009
  Serious: Yes (Death, Hospitalization)
  Sender: FDA-Public Use
  Company Number: WAES 0901USA02839

PATIENT
  Age: 59 Year
  Sex: Male

DRUGS (9)
  1. CAP VORINOSTAT [Suspect]
     Indication: MULTIPLE MYELOMA
     Dosage: 400  MG, DAILY, PO
     Route: 048
     Dates: start: 20090109, end: 20090302
  2. VELCADE [Suspect]
     Indication: MULTIPLE MYELOMA
     Dosage: 2.29 MG,  IV
     Route: 042
     Dates: start: 20090109, end: 20090227
  3. LACTULOSE [Concomitant]
  4. HIRUDOID [Concomitant]
  5. KONAKION [Concomitant]
  6. NEXIUM [Concomitant]
  7. ZYLORIC [Concomitant]
  8. DIHYDROCODEINE BITARTRATE INJ [Concomitant]
  9. DOXYCYCLINE [Concomitant]

REACTIONS (17)
  - ANURIA [None]
  - BLOOD ALBUMIN DECREASED [None]
  - DRUG TOXICITY [None]
  - GENERAL PHYSICAL HEALTH DETERIORATION [None]
  - HAEMOGLOBIN DECREASED [None]
  - HAEMOPTYSIS [None]
  - HYPOTENSION [None]
  - INAPPROPRIATE ANTIDIURETIC HORMONE SECRETION [None]
  - LACTIC ACIDOSIS [None]
  - PLATELET COUNT DECREASED [None]
  - PLEURAL EFFUSION [None]
  - PNEUMONIA [None]
  - RENAL FAILURE ACUTE [None]
  - SEPTIC SHOCK [None]
  - STAPHYLOCOCCAL INFECTION [None]
  - TACHYCARDIA [None]
  - WHITE BLOOD CELL COUNT DECREASED [None]
